FAERS Safety Report 6584203 (Version 2)
Quarter: 2013Q1

REPORT INFORMATION
  Report Type: Report from Study
  Country: US (occurrence: US)
  Receive Date: 20080315
  Receipt Date: 20130130
  Transmission Date: 20140127
  Serious: Yes (Other)
  Sender: FDA-Public Use
  Company Number: US-ABBOTT-08P-163-0435773-00

PATIENT
  Age: 61 None
  Sex: Female
  Weight: 102.27 kg

DRUGS (13)
  1. METHOTREXATE [Concomitant]
     Indication: RHEUMATOID ARTHRITIS
     Route: 048
  2. CLONIDINE [Concomitant]
     Indication: HYPERTENSION
     Dosage: 0.2 MG DAILY
     Route: 048
  3. FOLTEX [Concomitant]
     Indication: PRODUCT USED FOR UNKNOWN INDICATION
     Route: 048
  4. RELAFEN [Concomitant]
     Indication: RHEUMATOID ARTHRITIS
     Dosage: 750 MG DAILY
     Route: 048
  5. ASA [Concomitant]
     Indication: PRODUCT USED FOR UNKNOWN INDICATION
     Route: 048
  6. FOLIC ACID [Concomitant]
     Indication: RHEUMATOID ARTHRITIS
     Dosage: 1 MG DAILY
     Route: 048
  7. LEVOTHYROXINE [Concomitant]
     Indication: HYPOTHYROIDISM
     Dosage: 25 MCG DAILY
     Route: 048
  8. HUMIRA 40 MG/0.8 ML PEN [Suspect]
     Indication: RHEUMATOID ARTHRITIS
     Dosage: PFS
     Route: 058
     Dates: start: 2005
  9. HUMIRA 40 MG/0.8 ML PEN [Suspect]
     Dosage: PEN
     Route: 058
  10. HUMIRA 40 MG/0.8 ML PEN [Suspect]
     Dates: start: 2008, end: 2009
  11. HUMIRA 40 MG/0.8 ML PEN [Suspect]
  12. ARIMIDEX [Concomitant]
     Indication: BREAST CANCER
     Dosage: 1 MG DAILY
     Route: 048
  13. LISINOPRIL [Concomitant]
     Indication: HYPERTENSION
     Dosage: 40 MG DAILY
     Route: 048

REACTIONS (13)
  - Knee arthroplasty [Unknown]
  - Injection site pain [Not Recovered/Not Resolved]
  - Fibromyalgia [Not Recovered/Not Resolved]
  - Injection site bruising [Unknown]
  - Intervertebral disc disorder [Unknown]
  - Rheumatoid arthritis [Recovered/Resolved]
  - Injection site pain [Recovered/Resolved]
  - Injection site urticaria [Recovered/Resolved]
  - Liquid product physical issue [Unknown]
  - Poor quality drug administered [Unknown]
  - Injection site haemorrhage [Unknown]
  - Incorrect dose administered [Unknown]
  - Injection site extravasation [Unknown]
